FAERS Safety Report 7543775-5 (Version None)
Quarter: 2011Q2

REPORT INFORMATION
  Report Type: 
  Country: None (occurrence: None)
  Receive Date: 20110613
  Receipt Date: 20110428
  Transmission Date: 20111010
  Serious: Yes (Other)
  Sender: FDA-Public Use
  Company Number: US-ASTRAZENECA-2011SE25743

PATIENT
  Age: 80 Year
  Sex: Female

DRUGS (1)
  1. METOPROLOL SUCCINATE [Suspect]
     Indication: HYPERTENSION
     Route: 048

REACTIONS (4)
  - DRUG INEFFECTIVE [None]
  - VENTRICULAR TACHYCARDIA [None]
  - HYPERTENSION [None]
  - VENTRICULAR EXTRASYSTOLES [None]
